FAERS Safety Report 14747077 (Version 1)
Quarter: 2018Q2

REPORT INFORMATION
  Report Type: Report from Study
  Country: JP (occurrence: JP)
  Receive Date: 20180411
  Receipt Date: 20180411
  Transmission Date: 20180711
  Serious: Yes (Death)
  Sender: FDA-Public Use
  Company Number: JP-DSJP-DSJ-2018-109716

PATIENT

DRUGS (16)
  1. EDOXABAN [Suspect]
     Active Substance: EDOXABAN TOSYLATE
     Indication: ATRIAL FIBRILLATION
     Dosage: 30 MG, QD
     Route: 048
     Dates: start: 20170310, end: 20170705
  2. CLOPIDOGREL [Concomitant]
     Active Substance: CLOPIDOGREL BISULFATE
     Dosage: 75MG/DAY
     Route: 048
     Dates: end: 20170705
  3. LOSARTAN POTASSIUM. [Concomitant]
     Active Substance: LOSARTAN POTASSIUM
     Dosage: 25MG/DAY
     Route: 048
     Dates: end: 20180210
  4. HIRNAMIN                           /00038602/ [Concomitant]
     Dosage: 10MG/DAY
     Route: 048
     Dates: end: 20180210
  5. SETOUS [Concomitant]
     Active Substance: ZOTEPINE
     Dosage: 25MG/DAY
     Route: 048
     Dates: end: 20180210
  6. PIMOBENDAN [Concomitant]
     Active Substance: PIMOBENDAN
     Dosage: 3.75MG/DAY
     Route: 048
     Dates: start: 20170426, end: 20180210
  7. ARTIST [Concomitant]
     Active Substance: CARVEDILOL
     Dosage: 5MG/DAY
     Route: 048
     Dates: end: 20180210
  8. LIMAS [Concomitant]
     Active Substance: LITHIUM CARBONATE
     Dosage: 400MG/DAY
     Route: 048
     Dates: end: 20180210
  9. FUROSEMIDE. [Concomitant]
     Active Substance: FUROSEMIDE
     Dosage: 40MG/DAY
     Route: 048
     Dates: end: 20180210
  10. PURSENNIDE                         /00571901/ [Concomitant]
     Dosage: 48MG/DAY
     Route: 048
     Dates: end: 20180210
  11. BISONO [Concomitant]
     Active Substance: BISOPROLOL
     Dosage: 4MG/DAY
     Route: 050
     Dates: start: 20170310, end: 20180210
  12. CRESTOR [Concomitant]
     Active Substance: ROSUVASTATIN CALCIUM
     Dosage: 2.5MG/DAY
     Route: 048
     Dates: end: 20180210
  13. SAMSCA [Concomitant]
     Active Substance: TOLVAPTAN
     Dosage: 7.5MG/DAY
     Route: 048
     Dates: end: 20180210
  14. BAYASPIRIN [Concomitant]
     Active Substance: ASPIRIN
     Dosage: 100MG/DAY
     Route: 048
     Dates: end: 20170817
  15. TRICHLORMETHIAZIDE [Concomitant]
     Active Substance: TRICHLORMETHIAZIDE
     Dosage: 1MG/DAY
     Route: 048
     Dates: end: 20180210
  16. AKINETON [Concomitant]
     Active Substance: BIPERIDEN HYDROCHLORIDE
     Dosage: 1MG/DAY
     Route: 048
     Dates: end: 20180210

REACTIONS (4)
  - Pneumonia [Fatal]
  - Haemoptysis [Recovered/Resolved]
  - Haemoptysis [Not Recovered/Not Resolved]
  - Organising pneumonia [Recovering/Resolving]

NARRATIVE: CASE EVENT DATE: 20170705
